APPROVED DRUG PRODUCT: AMNESTEEM
Active Ingredient: ISOTRETINOIN
Strength: 30MG
Dosage Form/Route: CAPSULE;ORAL
Application: A075945 | Product #004 | TE Code: AB1
Applicant: MYLAN PHARMACEUTICALS INC
Approved: Mar 17, 2025 | RLD: No | RS: No | Type: RX